FAERS Safety Report 8223880-0 (Version None)
Quarter: 2012Q1

REPORT INFORMATION
  Report Type: 
  Country: None (occurrence: None)
  Receive Date: 20120321
  Receipt Date: 20120315
  Transmission Date: 20120608
  Serious: Yes (Hospitalization)
  Sender: FDA-Public Use
  Company Number: FR-PFIZER INC-2012067936

PATIENT
  Age: 8 Year
  Sex: Female
  Weight: 24 kg

DRUGS (1)
  1. PEDIATRIC ADVIL [Suspect]
     Indication: EAR PAIN
     Dosage: 1 DF, 2X/DAY
     Route: 048
     Dates: start: 20120205, end: 20120205

REACTIONS (4)
  - EPIDURITIS [None]
  - TORTICOLLIS [None]
  - CONVULSION [None]
  - PYREXIA [None]
